FAERS Safety Report 9201408 (Version 5)
Quarter: 2013Q3

REPORT INFORMATION
  Report Type: Spontaneous
  Country: US (occurrence: US)
  Receive Date: 20130401
  Receipt Date: 20130703
  Transmission Date: 20140515
  Serious: Yes (Other)
  Sender: FDA-Public Use
  Company Number: US-PFIZER INC-2013102729

PATIENT
  Age: 65 Year
  Sex: Female
  Weight: 82 kg

DRUGS (3)
  1. LYRICA [Suspect]
     Indication: PAIN IN EXTREMITY
     Dosage: 150MG IN MORNING, 75MG IN AFTERNOON AND 75MG IN EVENING
     Route: 048
     Dates: start: 2008
  2. LYRICA [Suspect]
     Indication: GAIT DISTURBANCE
     Dosage: 150 MG, 2X/DAY
  3. LYRICA [Suspect]
     Dosage: 75 MG, 2X/DAY

REACTIONS (4)
  - Blood pressure abnormal [Recovered/Resolved]
  - Pain [Recovered/Resolved]
  - Stress [Unknown]
  - Drug ineffective [Unknown]
